FAERS Safety Report 23841953 (Version 1)
Quarter: 2024Q2

REPORT INFORMATION
  Report Type: Report from Study
  Country: AU (occurrence: AU)
  Receive Date: 20240510
  Receipt Date: 20240510
  Transmission Date: 20240716
  Serious: Yes (Hospitalization)
  Sender: FDA-Public Use
  Company Number: AU-MYLANLABS-2024M1041746

PATIENT
  Age: 60 Year
  Sex: Female

DRUGS (2)
  1. BETAHISTINE [Suspect]
     Active Substance: BETAHISTINE
     Indication: Meniere^s disease
     Dosage: UNK
     Route: 048
  2. DEXAMETHASONE [Suspect]
     Active Substance: DEXAMETHASONE
     Indication: Meniere^s disease
     Dosage: UNK; 10 TIMES; INTRATYMPANIC
     Route: 065

REACTIONS (3)
  - Rebound effect [Recovering/Resolving]
  - Meniere^s disease [Recovering/Resolving]
  - Off label use [Unknown]
